FAERS Safety Report 11068539 (Version 1)
Quarter: 2015Q2

REPORT INFORMATION
  Report Type: Spontaneous
  Country: US (occurrence: None)
  Receive Date: 20150424
  Receipt Date: 20150424
  Transmission Date: 20150821
  Serious: Yes (Hospitalization)
  Sender: FDA-Public Use
  Company Number: None

PATIENT
  Age: 58 Year
  Sex: Female

DRUGS (1)
  1. GATTEX [Suspect]
     Active Substance: TEDUGLUTIDE\WATER
     Indication: MALABSORPTION
     Dosage: 0.33ML  SUBQ  QD
     Route: 058
     Dates: start: 20140708

REACTIONS (4)
  - Hypoalbuminaemia [None]
  - Confusional state [None]
  - Oedema [None]
  - Fatigue [None]

NARRATIVE: CASE EVENT DATE: 20150409
